FAERS Safety Report 5959145-7 (Version None)
Quarter: 2008Q4

REPORT INFORMATION
  Report Type: 
  Country: None (occurrence: None)
  Receive Date: 20081120
  Receipt Date: 20080307
  Transmission Date: 20090506
  Serious: Yes (Other)
  Sender: FDA-Public Use
  Company Number: A0714080A

PATIENT
  Age: 47 Year
  Sex: Female

DRUGS (4)
  1. BUPROPION HYDROCHLORIDE [Suspect]
     Indication: DEPRESSION
     Dosage: 100MG PER DAY
     Route: 048
     Dates: start: 20080126, end: 20080214
  2. PROZAC [Concomitant]
  3. VISTARIL [Concomitant]
  4. XANAX [Concomitant]

REACTIONS (5)
  - CHEST PAIN [None]
  - HEADACHE [None]
  - HEART RATE INCREASED [None]
  - SYNCOPE [None]
  - TREATMENT NONCOMPLIANCE [None]
